FAERS Safety Report 6269178-1 (Version None)
Quarter: 2009Q3

REPORT INFORMATION
  Report Type: 
  Country: None (occurrence: None)
  Receive Date: 20090715
  Receipt Date: 20090703
  Transmission Date: 20100115
  Serious: Yes (Life-Threatening)
  Sender: FDA-Public Use
  Company Number: JP-PFIZER INC-2009239092

PATIENT
  Age: 45 Year

DRUGS (2)
  1. GENOTROPIN [Suspect]
     Indication: GROWTH HORMONE DEFICIENCY
     Dosage: 0.3 MG, 1X/DAY
     Dates: start: 20090401
  2. CORTRIL [Concomitant]
     Dosage: UNK
     Route: 048

REACTIONS (1)
  - SHOCK [None]
